FAERS Safety Report 7686738-1 (Version None)
Quarter: 2011Q3

REPORT INFORMATION
  Report Type: 
  Country: None (occurrence: None)
  Receive Date: 20110811
  Receipt Date: 20110803
  Transmission Date: 20111222
  Serious: Yes (Hospitalization)
  Sender: FDA-Public Use
  Company Number: ABR_00204_2011

PATIENT
  Age: 68 Year
  Sex: Male
  Weight: 55 kg

DRUGS (8)
  1. ATORVASTATIN [Concomitant]
  2. RAMIPRIL [Concomitant]
  3. ERYTHROMYCIN [Suspect]
     Indication: INFECTION
     Dosage: 1000, 250 MG, 4 IN 1 D, ORAL
     Route: 048
     Dates: start: 20110606, end: 20110609
  4. FUROSEMIDE [Concomitant]
  5. SITAGLIPTIN [Concomitant]
  6. ANTIPSYCHOTICS [Concomitant]
  7. EURO-SENNA [Concomitant]
  8. ASPIRIN [Concomitant]

REACTIONS (4)
  - BLOOD ALBUMIN DECREASED [None]
  - HEPATIC FUNCTION ABNORMAL [None]
  - BLOOD ALKALINE PHOSPHATASE INCREASED [None]
  - ALANINE AMINOTRANSFERASE INCREASED [None]
